FAERS Safety Report 13524518 (Version 2)
Quarter: 2017Q3

REPORT INFORMATION
  Report Type: Report from Study
  Country: US (occurrence: US)
  Receive Date: 20170508
  Receipt Date: 20170929
  Transmission Date: 20171127
  Serious: No
  Sender: FDA-Public Use
  Company Number: US-ALEXION PHARMACEUTICALS INC.-A201704658

PATIENT
  Age: 49 Year
  Sex: Female

DRUGS (2)
  1. SOLIRIS [Suspect]
     Active Substance: ECULIZUMAB
     Indication: PAROXYSMAL NOCTURNAL HAEMOGLOBINURIA
     Dosage: UNK, QW
     Route: 042
  2. DEFEROXAMINE [Concomitant]
     Active Substance: DEFEROXAMINE\DEFEROXAMINE MESYLATE
     Indication: IRON OVERLOAD
     Dosage: 7 MG, 6 DAYS PER WEEK
     Route: 050

REACTIONS (17)
  - Serum ferritin abnormal [Unknown]
  - Alanine aminotransferase increased [Unknown]
  - Mean cell volume increased [Unknown]
  - Mean cell haemoglobin increased [Unknown]
  - Haemoglobin decreased [Unknown]
  - Aspartate aminotransferase increased [Unknown]
  - Lymphocyte count increased [Unknown]
  - Blood alkaline phosphatase increased [Unknown]
  - Red blood cell count decreased [Unknown]
  - Blood calcium increased [Unknown]
  - Abdominal pain upper [Recovering/Resolving]
  - Dysgeusia [Recovering/Resolving]
  - Neutrophil count decreased [Unknown]
  - Monocyte count increased [Unknown]
  - Haematocrit decreased [Unknown]
  - Dizziness [Unknown]
  - Platelet count decreased [Unknown]

NARRATIVE: CASE EVENT DATE: 20170404
